FAERS Safety Report 19183523 (Version 3)
Quarter: 2021Q3

REPORT INFORMATION
  Report Type: Spontaneous
  Country: JP (occurrence: JP)
  Receive Date: 20210427
  Receipt Date: 20210721
  Transmission Date: 20211014
  Serious: Yes (Hospitalization)
  Sender: FDA-Public Use
  Company Number: NVSJ2021JP006245

PATIENT
  Age: 66 Year
  Sex: Male

DRUGS (1)
  1. ULTIBRO INHALATION CAPSULES [Suspect]
     Active Substance: GLYCOPYRRONIUM\INDACATEROL
     Indication: OVERLAP SYNDROME
     Dosage: UNK
     Route: 055

REACTIONS (1)
  - Asthma [Recovered/Resolved]
